FAERS Safety Report 7578253-0 (Version None)
Quarter: 2011Q2

REPORT INFORMATION
  Report Type: 
  Country: None (occurrence: None)
  Receive Date: 20110628
  Receipt Date: 20110620
  Transmission Date: 20111010
  Serious: Yes (Hospitalization, Other)
  Sender: FDA-Public Use
  Company Number: CH-US-EMD SERONO, INC.-7061523

PATIENT
  Sex: Female
  Weight: 54 kg

DRUGS (2)
  1. REBIF [Suspect]
     Indication: MULTIPLE SCLEROSIS
     Route: 058
     Dates: start: 20040817
  2. CALCIMAGON [Concomitant]
     Route: 048
     Dates: end: 20110101

REACTIONS (7)
  - OSTEOARTHRITIS [None]
  - RESTLESS LEGS SYNDROME [None]
  - VARICOSE VEIN [None]
  - DEPRESSION [None]
  - THROMBOSIS [None]
  - HEARING IMPAIRED [None]
  - THROMBOPHLEBITIS [None]
